FAERS Safety Report 6124734-6 (Version None)
Quarter: 2009Q1

REPORT INFORMATION
  Report Type: 
  Country: None (occurrence: None)
  Receive Date: 20090319
  Receipt Date: 20090309
  Transmission Date: 20090719
  Serious: Yes (Other)
  Sender: FDA-Public Use
  Company Number: GB-TEVA-187518ISR

PATIENT
  Age: 79 Year
  Sex: Male

DRUGS (3)
  1. FLUOROURACIL [Suspect]
     Indication: COLON CANCER METASTATIC
     Route: 042
     Dates: start: 20050101
  2. OXALIPLATIN [Suspect]
     Indication: COLON CANCER METASTATIC
     Route: 042
     Dates: start: 20050101
  3. FOLINIC ACID [Suspect]
     Indication: COLON CANCER METASTATIC
     Route: 048
     Dates: start: 20050101

REACTIONS (1)
  - VASCULITIS [None]
